FAERS Safety Report 16759402 (Version 1)
Quarter: 2019Q3

REPORT INFORMATION
  Report Type: Spontaneous
  Country: IT (occurrence: IT)
  Receive Date: 20190830
  Receipt Date: 20190830
  Transmission Date: 20191005
  Serious: Yes (Life-Threatening, Other)
  Sender: FDA-Public Use
  Company Number: IT-SA-2019SA241565

PATIENT
  Age: 43 Year
  Sex: Female

DRUGS (1)
  1. LEMTRADA [Suspect]
     Active Substance: ALEMTUZUMAB
     Indication: MULTIPLE SCLEROSIS
     Dosage: 1 DF, QD
     Route: 042

REACTIONS (4)
  - Perihepatic abscess [Recovered/Resolved with Sequelae]
  - Cholangitis [Recovered/Resolved with Sequelae]
  - Pulmonary embolism [Recovered/Resolved with Sequelae]
  - Cholecystitis [Recovered/Resolved with Sequelae]

NARRATIVE: CASE EVENT DATE: 20190719
